FAERS Safety Report 5155153-7 (Version None)
Quarter: 2006Q4

REPORT INFORMATION
  Report Type: 
  Country: None (occurrence: None)
  Receive Date: 20061121
  Receipt Date: 20060913
  Transmission Date: 20070319
  Serious: Yes (Hospitalization, Disabling)
  Sender: FDA-Public Use
  Company Number: 2006UW17954

PATIENT
  Age: 43 Year
  Sex: Female

DRUGS (6)
  1. SEROQUEL [Suspect]
     Indication: MANIA
     Route: 048
     Dates: start: 20060907, end: 20060907
  2. SEROQUEL [Suspect]
     Route: 048
     Dates: start: 20060908, end: 20060908
  3. DEPAKOTE ER [Concomitant]
     Indication: AFFECTIVE DISORDER
     Route: 048
  4. LITHOBID [Concomitant]
     Indication: AFFECTIVE DISORDER
     Dosage: 300 MG QAM, 600 MG QHS
     Route: 048
  5. LORAZEPAM [Concomitant]
     Indication: AGITATION
  6. LEVOXYL [Concomitant]
     Indication: HYPOTHYROIDISM
     Route: 048

REACTIONS (1)
  - CEREBRAL INFARCTION [None]
